FAERS Safety Report 6209548-0 (Version None)
Quarter: 2009Q2

REPORT INFORMATION
  Report Type: 
  Country: None (occurrence: None)
  Receive Date: 20090527
  Receipt Date: 20090511
  Transmission Date: 20091009
  Serious: Yes (Disabling)
  Sender: FDA-Public Use
  Company Number: 2009-0571

PATIENT
  Age: 67 Year
  Sex: Female

DRUGS (1)
  1. DYSPORT [Suspect]
     Indication: MUSCLE SPASTICITY
     Dosage: 1500 UNITS, SINGLE USE; SINGLE CYCLE
     Route: 030
     Dates: start: 20081204, end: 20081204

REACTIONS (5)
  - BOTULISM [None]
  - COMPLEX REGIONAL PAIN SYNDROME [None]
  - FEELING HOT [None]
  - JOINT SWELLING [None]
  - NEUROMUSCULAR TOXICITY [None]
